FAERS Safety Report 5233199-8 (Version None)
Quarter: 2007Q1

REPORT INFORMATION
  Report Type: 
  Country: None (occurrence: None)
  Receive Date: 20070207
  Receipt Date: 20070201
  Transmission Date: 20070707
  Serious: Yes (Hospitalization)
  Sender: FDA-Public Use
  Company Number: JP-MERCK-0702USA00537

PATIENT
  Age: 10 Year
  Sex: Male

DRUGS (4)
  1. SINGULAIR [Suspect]
     Indication: ASTHMA
     Route: 048
     Dates: start: 20060601
  2. RITALIN [Suspect]
     Indication: AUTISM
     Route: 048
     Dates: start: 20060901, end: 20070131
  3. ZITHROMAX [Concomitant]
     Route: 048
     Dates: start: 20070122, end: 20070124
  4. UNASYN (AMPICILLIN SODIUM (+) SULBACTAM SODIUM) [Concomitant]
     Route: 041
     Dates: start: 20070122, end: 20070125

REACTIONS (1)
  - STEVENS-JOHNSON SYNDROME [None]
